FAERS Safety Report 10170400 (Version 1)
Quarter: 2014Q2

REPORT INFORMATION
  Report Type: Spontaneous
  Country: US (occurrence: US)
  Receive Date: 20140513
  Receipt Date: 20140513
  Transmission Date: 20141212
  Serious: No
  Sender: FDA-Public Use
  Company Number: US-UPSHER-SMITH LABORATORIES, INC.-13003838

PATIENT
  Sex: Female

DRUGS (3)
  1. KLOR-CON TABLETS [Suspect]
     Indication: BLOOD POTASSIUM DECREASED
     Dosage: 10 MEQ, QID
     Route: 048
  2. KLOR-CON TABLETS [Suspect]
     Dosage: 10 MEQ, BID
     Route: 048
     Dates: start: 2001
  3. HYDROCHLOROTHIAZIDE [Concomitant]
     Dosage: UNK
     Dates: end: 2009

REACTIONS (2)
  - Blood potassium decreased [Not Recovered/Not Resolved]
  - Medication residue present [Not Recovered/Not Resolved]
